FAERS Safety Report 22184536 (Version 2)
Quarter: 2023Q2

REPORT INFORMATION
  Report Type: Spontaneous
  Country: DE (occurrence: DE)
  Receive Date: 20230407
  Receipt Date: 20230417
  Transmission Date: 20230722
  Serious: No
  Sender: FDA-Public Use
  Company Number: DE-UCBSA-2023017577

PATIENT
  Age: 58 Year
  Sex: Male

DRUGS (3)
  1. NEUPRO [Suspect]
     Active Substance: ROTIGOTINE
     Indication: Parkinson^s disease
     Dosage: 1 MILLIGRAM, 2X/DAY (BID)
  2. LEVODOPA [Concomitant]
     Active Substance: LEVODOPA
     Indication: Product used for unknown indication
     Dosage: 1/4/DAY
  3. CLOZAPINE [Concomitant]
     Active Substance: CLOZAPINE
     Indication: Product used for unknown indication
     Dosage: ONE HALF /DAY

REACTIONS (5)
  - Restlessness [Unknown]
  - Erythema [Unknown]
  - Application site pruritus [Unknown]
  - Product adhesion issue [Unknown]
  - Off label use [Unknown]
